FAERS Safety Report 15170673 (Version 1)
Quarter: 2018Q3

REPORT INFORMATION
  Report Type: Other
  Country: CN (occurrence: CN)
  Receive Date: 20180720
  Receipt Date: 20180720
  Transmission Date: 20181010
  Serious: Yes (Other)
  Sender: FDA-Public Use
  Company Number: CN-DENTSPLY-2018SCDP000299

PATIENT
  Age: 61 Year
  Sex: Male

DRUGS (2)
  1. LIDOCAINE HCL [Suspect]
     Active Substance: LIDOCAINE HYDROCHLORIDE
     Indication: ANAESTHESIA PROCEDURE
     Dosage: 4 ML, UNK
     Route: 008
  2. ROPIVACAINE [Suspect]
     Active Substance: ROPIVACAINE
     Indication: ANAESTHESIA PROCEDURE
     Dosage: TEST DOSE OF 4 ML, 2% LIDOCAINE AND 0.5% ROPIVACAINE WERE ADMINISTERED
     Route: 008

REACTIONS (2)
  - Wrong technique in product usage process [None]
  - Spinal anaesthesia [None]
